FAERS Safety Report 20797684 (Version 2)
Quarter: 2022Q2

REPORT INFORMATION
  Report Type: Spontaneous
  Country: CN (occurrence: None)
  Receive Date: 20220506
  Receipt Date: 20220513
  Transmission Date: 20220720
  Serious: Yes (Other)
  Sender: FDA-Public Use
  Company Number: 2022A174123

PATIENT
  Age: 35 Year
  Sex: Male
  Weight: 60 kg

DRUGS (2)
  1. METFORMIN HYDROCHLORIDE\SAXAGLIPTIN [Suspect]
     Active Substance: METFORMIN HYDROCHLORIDE\SAXAGLIPTIN
     Indication: Diabetes mellitus
     Route: 048
     Dates: start: 20220421, end: 20220422
  2. PREGABALIN [Suspect]
     Active Substance: PREGABALIN
     Indication: Diabetes mellitus
     Route: 048
     Dates: start: 20220421, end: 20220422

REACTIONS (6)
  - Cold sweat [Recovering/Resolving]
  - Rash maculo-papular [Unknown]
  - Rash [Recovering/Resolving]
  - Pruritus [Recovering/Resolving]
  - Anaphylactic reaction [Unknown]
  - Erythema [Unknown]

NARRATIVE: CASE EVENT DATE: 20220422
